FAERS Safety Report 6399218-0 (Version None)
Quarter: 2009Q4

REPORT INFORMATION
  Report Type: 
  Country: None (occurrence: None)
  Receive Date: 20091008
  Receipt Date: 20090929
  Transmission Date: 20100525
  Serious: Yes (Other)
  Sender: FDA-Public Use
  Company Number: GXKR2009GB10783

PATIENT
  Age: 75 Year
  Sex: Male

DRUGS (9)
  1. CEFUROXIME [Suspect]
     Indication: PNEUMONIA
     Dosage: 2 COURSES
  2. VALPROATE SODIUM [Suspect]
     Indication: EPILEPSY
     Dosage: 500 MG, BID
  3. ADALAT CC [Concomitant]
  4. ALENDRONIC ACID (ALENDRONIC ACID) [Concomitant]
  5. BISOPROLOL FUMARATE [Concomitant]
  6. CLOPIDOGREL [Concomitant]
  7. CRESTOR [Concomitant]
  8. RAMIPRIL [Concomitant]
  9. RANITI9DINE (RANITIDINE) [Concomitant]

REACTIONS (2)
  - DRUG INTERACTION [None]
  - EPILEPSY [None]
